FAERS Safety Report 17159484 (Version 8)
Quarter: 2020Q3

REPORT INFORMATION
  Report Type: Report from Study
  Country: US (occurrence: US)
  Receive Date: 20191216
  Receipt Date: 20200922
  Transmission Date: 20201102
  Serious: Yes (Other)
  Sender: FDA-Public Use
  Company Number: US-GLAXOSMITHKLINE-US-2018TSO04627

PATIENT
  Age: 71 Year
  Sex: Female

DRUGS (7)
  1. NIRAPARIB [Suspect]
     Active Substance: NIRAPARIB
     Dosage: 100 MG
     Route: 048
  2. NIRAPARIB [Suspect]
     Active Substance: NIRAPARIB
     Dosage: 100 MG, TAKE 1 CAPSULE ONEDAILY BY MOUTH WITH OR WITHOUT FOOD
     Route: 048
     Dates: start: 20190116
  3. NIRAPARIB [Suspect]
     Active Substance: NIRAPARIB
     Dosage: 200 MG, QD WITH OR WITHOUT FOOD AT THE SAME TIME EACH DAY (PREFERE IN EVENING)
     Route: 048
     Dates: start: 20190116
  4. NIRAPARIB [Suspect]
     Active Substance: NIRAPARIB
     Dosage: 100 MG
  5. NIRAPARIB [Suspect]
     Active Substance: NIRAPARIB
     Dosage: 200 MG, DAILY, AM WITHOUT FOOD, EVERYDAY
     Dates: start: 20180927, end: 20190116
  6. NIRAPARIB [Suspect]
     Active Substance: NIRAPARIB
     Dosage: 100 MG, QD
  7. NIRAPARIB [Suspect]
     Active Substance: NIRAPARIB
     Indication: OVARIAN CANCER
     Dosage: 100 MG, UNK
     Route: 048
     Dates: start: 20180901

REACTIONS (27)
  - Stomatitis [Not Recovered/Not Resolved]
  - Blood cholesterol abnormal [Unknown]
  - Taste disorder [Not Recovered/Not Resolved]
  - Gingival disorder [Unknown]
  - Blood pressure increased [Unknown]
  - Fatigue [Not Recovered/Not Resolved]
  - Asthenia [Unknown]
  - Weight decreased [Unknown]
  - Headache [Recovered/Resolved]
  - Adverse drug reaction [Unknown]
  - Pruritus [Not Recovered/Not Resolved]
  - Underdose [Recovered/Resolved]
  - Hyperhidrosis [Recovered/Resolved]
  - Dizziness [Not Recovered/Not Resolved]
  - Myalgia [Not Recovered/Not Resolved]
  - Nausea [Not Recovered/Not Resolved]
  - Dental care [Unknown]
  - Illness [Unknown]
  - Pain in extremity [Unknown]
  - Neuropathy peripheral [Unknown]
  - Alopecia [Not Recovered/Not Resolved]
  - Product dose omission issue [Unknown]
  - Sinusitis [Unknown]
  - Hair texture abnormal [Unknown]
  - Dry skin [Unknown]
  - Blood glucose increased [Unknown]
  - Cough [Unknown]

NARRATIVE: CASE EVENT DATE: 2018
